FAERS Safety Report 4306242-8 (Version None)
Quarter: 2004Q1

REPORT INFORMATION
  Report Type: 
  Country: None (occurrence: None)
  Receive Date: 20040225
  Receipt Date: 20030326
  Transmission Date: 20041129
  Serious: No
  Sender: FDA-Public Use
  Company Number: US-BRISTOL-MYERS SQUIBB COMPANY-12239075

PATIENT
  Age: 63 Year
  Sex: Male
  Weight: 95 kg

DRUGS (6)
  1. EXCEDRIN (MIGRAINE) [Suspect]
     Indication: HEADACHE
     Route: 048
  2. DIOVAN [Concomitant]
  3. PAXIL [Concomitant]
  4. LIPITOR [Concomitant]
  5. TEMAZEPAM [Concomitant]
  6. VICODIN ES [Concomitant]

REACTIONS (1)
  - TINNITUS [None]
